FAERS Safety Report 25758358 (Version 1)
Quarter: 2025Q3

REPORT INFORMATION
  Report Type: Spontaneous
  Country: EU (occurrence: EU)
  Receive Date: 20250904
  Receipt Date: 20250904
  Transmission Date: 20251021
  Serious: Yes (Disabling, Other)
  Sender: ORGANON
  Company Number: None

PATIENT
  Age: 46 Year
  Sex: Male

DRUGS (5)
  1. EZETIMIBE [Suspect]
     Active Substance: EZETIMIBE
     Route: 048
  2. EZETIMIBE\ROSUVASTATIN [Suspect]
     Active Substance: EZETIMIBE\ROSUVASTATIN
     Route: 048
  3. ATORVASTATIN CALCIUM\EZETIMIBE [Suspect]
     Active Substance: ATORVASTATIN CALCIUM\EZETIMIBE
     Route: 048
  4. ROSUVASTATIN CALCIUM [Suspect]
     Active Substance: ROSUVASTATIN CALCIUM
     Route: 048
  5. CRESTOR [Suspect]
     Active Substance: ROSUVASTATIN CALCIUM
     Route: 048

REACTIONS (4)
  - Myalgia [Recovered/Resolved]
  - Chest pain [Recovered/Resolved]
  - Abdominal discomfort [Recovered/Resolved]
  - Dizziness [Recovered/Resolved]
